FAERS Safety Report 18963081 (Version 2)
Quarter: 2021Q1

REPORT INFORMATION
  Report Type: Report from Study
  Country: US (occurrence: US)
  Receive Date: 20210303
  Receipt Date: 20210331
  Transmission Date: 20210420
  Serious: Yes (Life-Threatening, Hospitalization, Disabling, Other)
  Sender: FDA-Public Use
  Company Number: US-ASTRAZENECA-2021A081369

PATIENT
  Age: 2928 Week
  Sex: Female
  Weight: 74.8 kg

DRUGS (1)
  1. FARXIGA [Suspect]
     Active Substance: DAPAGLIFLOZIN PROPANEDIOL
     Indication: DIABETES MELLITUS
     Route: 048
     Dates: start: 20201111, end: 20210220

REACTIONS (6)
  - Product dose omission issue [Unknown]
  - Insurance issue [Unknown]
  - Ataxia [Unknown]
  - Vertigo CNS origin [Unknown]
  - Cerebrovascular accident [Recovering/Resolving]
  - Hemiparesis [Unknown]

NARRATIVE: CASE EVENT DATE: 20201102
